FAERS Safety Report 11825877 (Version 2)
Quarter: 2016Q2

REPORT INFORMATION
  Report Type: Spontaneous
  Country: GB (occurrence: GB)
  Receive Date: 20151211
  Receipt Date: 20160603
  Transmission Date: 20160815
  Serious: Yes (Other)
  Sender: FDA-Public Use
  Company Number: GB-AUROBINDO-AUR-APL-2015-11246

PATIENT
  Age: 22 Year
  Sex: Female

DRUGS (6)
  1. LAMICTAL [Suspect]
     Active Substance: LAMOTRIGINE
     Indication: PRODUCT USED FOR UNKNOWN INDICATION
     Dosage: 100 MG, UNK
     Route: 048
  2. LAMICTAL [Suspect]
     Active Substance: LAMOTRIGINE
     Dosage: 50 MG, UNK
     Route: 048
  3. LAMOTRIGINE TABLET [Suspect]
     Active Substance: LAMOTRIGINE
     Indication: EPILEPSY
     Dosage: 200 MILLIGRAM DAILY;
     Route: 048
  4. LAMOTRIGINE TABLET [Suspect]
     Active Substance: LAMOTRIGINE
     Dosage: 200 MG, (200 MILLIGRAM DAILY;)
     Route: 048
  5. LAMOTRIGINE TABLET [Suspect]
     Active Substance: LAMOTRIGINE
     Dosage: 100 MG, (150 MILLIGRAM DAILY; ONE 100MG TABLET AND HALF 100 MG TABLET)
     Route: 048
  6. LAMOTRIGINE TABLET [Suspect]
     Active Substance: LAMOTRIGINE
     Dosage: 100 MG, (150 MILLIGRAM DAILY; ONE 100MG TABLET AND HALF 100 MG TABLET)
     Route: 048

REACTIONS (6)
  - Infection [Recovered/Resolved]
  - Seizure [Recovered/Resolved]
  - Nasal congestion [Recovered/Resolved]
  - Swelling face [Unknown]
  - Asthma [Recovered/Resolved]
  - Headache [Recovered/Resolved]
